FAERS Safety Report 5442459-7 (Version None)
Quarter: 2007Q3

REPORT INFORMATION
  Report Type: 
  Country: None (occurrence: None)
  Receive Date: 20070904
  Receipt Date: 20070823
  Transmission Date: 20080115
  Serious: Yes (Other)
  Sender: FDA-Public Use
  Company Number: GB-PFIZER INC-2007071890

PATIENT
  Age: 60 Year
  Sex: Female

DRUGS (3)
  1. VARENICLINE TABLETS [Suspect]
     Route: 048
     Dates: start: 20070712, end: 20070723
  2. BENDROFLUMETHIAZIDE [Concomitant]
     Indication: HYPERTENSION
     Route: 048
     Dates: start: 20050719
  3. GAMOLENIC ACID [Concomitant]
     Indication: MENOPAUSE
     Route: 048

REACTIONS (4)
  - DEPRESSION [None]
  - PERSONALITY CHANGE [None]
  - SOCIAL AVOIDANT BEHAVIOUR [None]
  - SOMNOLENCE [None]
